FAERS Safety Report 23880506 (Version 2)
Quarter: 2024Q2

REPORT INFORMATION
  Report Type: Spontaneous
  Country: FR (occurrence: FR)
  Receive Date: 20240521
  Receipt Date: 20240618
  Transmission Date: 20240716
  Serious: Yes (Other)
  Sender: FDA-Public Use
  Company Number: FR-JNJFOC-20240547324

PATIENT
  Age: 30 Year
  Sex: Female
  Weight: 144 kg

DRUGS (7)
  1. SPRAVATO [Suspect]
     Active Substance: ESKETAMINE
     Indication: Depression
     Dates: start: 20240227
  2. ARIPIPRAZOLE [Concomitant]
     Active Substance: ARIPIPRAZOLE
  3. CLOMIPRAMINE [Concomitant]
     Active Substance: CLOMIPRAMINE
  4. CYAMEMAZINE [Concomitant]
     Active Substance: CYAMEMAZINE
  5. LITHIUM [Concomitant]
     Active Substance: LITHIUM
     Dosage: LITHIUM ER (400 UNIT UNSPECIFIED)
  6. MIRTAZAPINE [Concomitant]
     Active Substance: MIRTAZAPINE
  7. PRAZOSIN [Concomitant]
     Active Substance: PRAZOSIN

REACTIONS (2)
  - Loss of consciousness [Unknown]
  - Malaise [Recovered/Resolved]

NARRATIVE: CASE EVENT DATE: 20240101
